FAERS Safety Report 10402964 (Version 1)
Quarter: 2014Q3

REPORT INFORMATION
  Report Type: Spontaneous
  Country: US (occurrence: None)
  Receive Date: 20140820
  Receipt Date: 20140820
  Transmission Date: 20150326
  Serious: Yes (Disabling)
  Sender: FDA-Public Use
  Company Number: None

PATIENT
  Age: 50 Year
  Sex: Female

DRUGS (5)
  1. DEPO-PROVERA [Suspect]
     Active Substance: MEDROXYPROGESTERONE ACETATE
     Indication: HAEMORRHAGE
     Dosage: 1 SHOT  INJECTION IN HIP (R),  INJECTION IN (L) ARM
     Dates: start: 201401, end: 20140523
  2. VITAMIN D [Concomitant]
     Active Substance: CHOLECALCIFEROL
  3. VITAMIN C [Concomitant]
     Active Substance: ASCORBIC ACID
  4. MULTI-VITAMIN [Concomitant]
     Active Substance: .ALPHA.-TOCOPHEROL ACETATE, DL-\ASCORBIC ACID\CYANOCOBALAMIN\FLUORIDE ION\FOLIC ACID\NIACIN\PYRIDOXINE\RIBOFLAVIN\THIAMINE\VITAMIN A\VITAMIN D
  5. DEPO-PROVERA [Suspect]
     Active Substance: MEDROXYPROGESTERONE ACETATE
     Indication: PROPHYLAXIS
     Dosage: 1 SHOT  INJECTION IN HIP (R),  INJECTION IN (L) ARM
     Dates: start: 201401, end: 20140523

REACTIONS (18)
  - Arthralgia [None]
  - Fatigue [None]
  - Anger [None]
  - Feeling abnormal [None]
  - Pain [None]
  - Hot flush [None]
  - Uterine spasm [None]
  - Movement disorder [None]
  - Myalgia [None]
  - Mood swings [None]
  - Hyperhidrosis [None]
  - Bone pain [None]
  - Lethargy [None]
  - Agitation [None]
  - Scar [None]
  - Depression suicidal [None]
  - Multiple injuries [None]
  - Uterine haemorrhage [None]

NARRATIVE: CASE EVENT DATE: 20140525
